APPROVED DRUG PRODUCT: VELCADE
Active Ingredient: BORTEZOMIB
Strength: 3.5MG/VIAL
Dosage Form/Route: INJECTABLE;INTRAVENOUS, SUBCUTANEOUS
Application: N021602 | Product #001 | TE Code: AP
Applicant: TAKEDA PHARMACEUTICALS USA INC
Approved: May 13, 2003 | RLD: Yes | RS: Yes | Type: RX